FAERS Safety Report 24212820 (Version 1)
Quarter: 2024Q3

REPORT INFORMATION
  Report Type: Spontaneous
  Country: US (occurrence: US)
  Receive Date: 20240815
  Receipt Date: 20240815
  Transmission Date: 20241016
  Serious: No
  Sender: AMGEN
  Company Number: US-AMGEN-USASP2024161439

PATIENT
  Age: 66 Year
  Sex: Female

DRUGS (5)
  1. OTEZLA [Suspect]
     Active Substance: APREMILAST
     Indication: Psoriasis
     Dosage: 30 MILLIGRAM, BID
     Route: 048
     Dates: start: 20240717
  2. ACYCLOVIR [Concomitant]
     Active Substance: ACYCLOVIR
     Dosage: 400 MILLIGRAM
  3. CLOBETASOL [Concomitant]
     Active Substance: CLOBETASOL
  4. FLUOROURACIL [Concomitant]
     Active Substance: FLUOROURACIL
  5. SKYRIZI [Concomitant]
     Active Substance: RISANKIZUMAB-RZAA
     Dosage: PEN 150 MG/ML (1 ML)

REACTIONS (3)
  - Therapy non-responder [Unknown]
  - Psoriasis [Unknown]
  - Discomfort [Unknown]

NARRATIVE: CASE EVENT DATE: 20240101
